FAERS Safety Report 8570215 (Version 4)
Quarter: 2012Q4

REPORT INFORMATION
  Report Type: 
  Country: FR (occurrence: FR)
  Receive Date: 20120521
  Receipt Date: 20121102
  Transmission Date: 20130627
  Serious: Yes (Other)
  Sender: FDA-Public Use
  Company Number: FR-AMGEN-FRASP2012030785

PATIENT
  Age: 71 Year
  Sex: Male
  Weight: 55 kg

DRUGS (2)
  1. ENBREL [Suspect]
     Indication: RHEUMATOID ARTHRITIS
     Dosage: 50 mg, weekly
     Route: 058
     Dates: start: 200808, end: 201206
  2. METHOTREXATE SODIUM [Suspect]
     Indication: RHEUMATOID ARTHRITIS
     Dosage: 15 mg, weekly
     Route: 048
     Dates: start: 200303, end: 201206

REACTIONS (2)
  - Squamous cell carcinoma of lung [Not Recovered/Not Resolved]
  - Squamous cell carcinoma of skin [Recovered/Resolved]
